FAERS Safety Report 4981385-4 (Version None)
Quarter: 2006Q2

REPORT INFORMATION
  Report Type: 
  Country: None (occurrence: None)
  Receive Date: 20060424
  Receipt Date: 20050315
  Transmission Date: 20061013
  Serious: Yes (Other)
  Sender: FDA-Public Use
  Company Number: US-MERCK-0503USA03154

PATIENT
  Age: 81 Year
  Sex: Male
  Weight: 99 kg

DRUGS (3)
  1. VIOXX [Suspect]
     Indication: ARTHRITIS
     Route: 048
     Dates: start: 19990101, end: 20040101
  2. NEURONTIN [Concomitant]
     Route: 065
  3. COUMADIN [Concomitant]
     Route: 065

REACTIONS (11)
  - CARDIAC DISORDER [None]
  - CARDIAC FAILURE [None]
  - CEREBROVASCULAR ACCIDENT [None]
  - CHEST PAIN [None]
  - HEPATOCELLULAR DAMAGE [None]
  - INJURY [None]
  - MYOCARDIAL INFARCTION [None]
  - PALPITATIONS [None]
  - RENAL DISORDER [None]
  - THROMBOSIS [None]
  - ULCER [None]
